FAERS Safety Report 10054947 (Version 2)
Quarter: 2014Q2

REPORT INFORMATION
  Report Type: Spontaneous
  Country: US (occurrence: US)
  Receive Date: 20140402
  Receipt Date: 20140508
  Transmission Date: 20141212
  Serious: Yes (Hospitalization, Other)
  Sender: FDA-Public Use
  Company Number: US-RB-065175-14

PATIENT
  Age: 21 Year
  Sex: Female

DRUGS (2)
  1. BUPRENORPHINE UNSPECIFIED [Suspect]
     Indication: DRUG DEPENDENCE
     Route: 065
     Dates: start: 20131106, end: 20140221
  2. HEROIN [Suspect]
     Indication: PRODUCT USED FOR UNKNOWN INDICATION
     Dosage: DOSING DETAILS UNKNOWN, 2-3 BAGS PER DAY
     Route: 065

REACTIONS (7)
  - Maternal exposure during pregnancy [Recovered/Resolved]
  - Drug abuse [Recovered/Resolved]
  - Foetal heart rate decreased [Recovered/Resolved]
  - Umbilical cord prolapse [Recovered/Resolved]
  - Stillbirth [Recovered/Resolved]
  - Respiratory disorder [Unknown]
  - Post lumbar puncture syndrome [Unknown]
